FAERS Safety Report 6848369-2 (Version None)
Quarter: 2010Q3

REPORT INFORMATION
  Report Type: 
  Country: None (occurrence: None)
  Receive Date: 20100714
  Receipt Date: 20100702
  Transmission Date: 20110219
  Serious: Yes (Other)
  Sender: FDA-Public Use
  Company Number: 2010SP025235

PATIENT
  Age: 61 Year
  Sex: Female

DRUGS (2)
  1. NASONEX [Suspect]
     Indication: PRODUCT USED FOR UNKNOWN INDICATION
     Dosage: NAS
     Route: 045
     Dates: start: 20090901, end: 20090901
  2. NASONEX [Suspect]
     Indication: PRODUCT USED FOR UNKNOWN INDICATION
     Dosage: NAS
     Route: 045
     Dates: start: 20100401

REACTIONS (2)
  - CATARACT [None]
  - DEVICE MALFUNCTION [None]
